FAERS Safety Report 19518971 (Version 1)
Quarter: 2021Q3

REPORT INFORMATION
  Report Type: Spontaneous
  Country: US (occurrence: US)
  Receive Date: 20210712
  Receipt Date: 20210712
  Transmission Date: 20211014
  Serious: No
  Sender: FDA-Public Use
  Company Number: US-TRIS PHARMA, INC.-21US009499

PATIENT

DRUGS (9)
  1. HYDROCODONE + APAP [Suspect]
     Active Substance: ACETAMINOPHEN\HYDROCODONE BITARTRATE
     Dosage: 0.5 DOSAGE FORM, BID OR Q H 6HRS
     Route: 048
     Dates: start: 202105, end: 2021
  2. ATORVASTATIN CALCIUM. [Concomitant]
     Active Substance: ATORVASTATIN CALCIUM
     Indication: BLOOD CHOLESTEROL INCREASED
     Dosage: 20 MILLIGRAM
     Dates: start: 20210326, end: 20210525
  3. LISINOPRIL. [Concomitant]
     Active Substance: LISINOPRIL
     Indication: PROPHYLAXIS
     Dosage: UNK
  4. VITAMIN C [Concomitant]
     Active Substance: ASCORBIC ACID
     Indication: PRODUCT USED FOR UNKNOWN INDICATION
  5. ATORVASTATIN CALCIUM. [Concomitant]
     Active Substance: ATORVASTATIN CALCIUM
     Dosage: 10 MILLIGRAM
     Dates: start: 20210226, end: 20210325
  6. VITAMIN B COMPLEX [Concomitant]
     Active Substance: CYANOCOBALAMIN\DEXPANTHENOL\NIACINAMIDE\PYRIDOXINE HYDROCHLORIDE\RIBOFLAVIN 5^-PHOSPHATE SODIUM\THIAMINE HYDROCHLORIDE\VITAMIN B COMPLEX
     Indication: PRODUCT USED FOR UNKNOWN INDICATION
  7. TYLENOL [Concomitant]
     Active Substance: ACETAMINOPHEN
     Indication: MUSCLE SPASMS
  8. HYDROCODONE + APAP [Suspect]
     Active Substance: ACETAMINOPHEN\HYDROCODONE BITARTRATE
     Indication: MUSCLE SPASMS
     Dosage: 1 DOSAGE FORM, BID OR Q H 6HRS
     Route: 048
     Dates: start: 2021
  9. VITAMINS NOS [Concomitant]
     Active Substance: VITAMINS
     Indication: PRODUCT USED FOR UNKNOWN INDICATION

REACTIONS (2)
  - Therapeutic product effect incomplete [Unknown]
  - Product dose omission issue [Unknown]

NARRATIVE: CASE EVENT DATE: 2021
